FAERS Safety Report 5158942-8 (Version None)
Quarter: 2006Q4

REPORT INFORMATION
  Report Type: 
  Country: None (occurrence: None)
  Receive Date: 20061117
  Receipt Date: 20061101
  Transmission Date: 20070319
  Serious: Yes (Life-Threatening)
  Sender: FDA-Public Use
  Company Number: 232449

PATIENT
  Age: 46 Year
  Sex: Female
  Weight: 47 kg

DRUGS (5)
  1. MABTHERA (RITUXIMAB)CONC FOR SOLUTION FOR INFUSION [Suspect]
     Indication: LYMPHOMA
     Dosage: 600 MG, INTRAVENOUS
     Route: 042
     Dates: start: 20061026, end: 20061026
  2. CYCLOPHOSPHAMIDE [Concomitant]
  3. DOXORUBICIN HCL [Concomitant]
  4. VINCRISTINE [Concomitant]
  5. PREDNISOLONE [Concomitant]

REACTIONS (3)
  - ANAPHYLACTIC REACTION [None]
  - BACK PAIN [None]
  - TACHYCARDIA [None]
